FAERS Safety Report 6977921-9 (Version None)
Quarter: 2010Q3

REPORT INFORMATION
  Report Type: 
  Country: None (occurrence: None)
  Receive Date: 20100913
  Receipt Date: 20100902
  Transmission Date: 20110219
  Serious: No
  Sender: FDA-Public Use
  Company Number: US-US-EMD SERONO, INC.-7015883

PATIENT
  Sex: Female

DRUGS (8)
  1. REBIF [Suspect]
     Indication: MULTIPLE SCLEROSIS
     Route: 058
     Dates: start: 20100611
  2. REBIF [Suspect]
     Indication: PRODUCT USED FOR UNKNOWN INDICATION
  3. AMBIEN [Concomitant]
     Indication: INSOMNIA
  4. EFFEXOR [Concomitant]
     Indication: DEPRESSION
  5. LAMICTAL [Concomitant]
     Indication: BIPOLAR DISORDER
  6. TYLENOL [Concomitant]
     Indication: PREMEDICATION
  7. DIVALPROEX SODIUM [Concomitant]
     Indication: BIPOLAR DISORDER
  8. LEVOTHYROXINE SODIUM [Concomitant]
     Indication: HYPOTHYROIDISM

REACTIONS (4)
  - BALANCE DISORDER [None]
  - BLOOD CHOLESTEROL INCREASED [None]
  - DEPRESSION [None]
  - INJECTION SITE ERYTHEMA [None]
